FAERS Safety Report 7354873-3 (Version None)
Quarter: 2011Q1

REPORT INFORMATION
  Report Type: 
  Country: None (occurrence: None)
  Receive Date: 20110307
  Receipt Date: 20110224
  Transmission Date: 20110831
  Serious: Yes (Other)
  Sender: FDA-Public Use
  Company Number: TCI2011A00865

PATIENT
  Age: 61 Year
  Sex: Male

DRUGS (10)
  1. LOXOPROFEN EMEC (LOXOPROFEN SODIUM) [Concomitant]
  2. TAKEPRON OD TABLETS 15 (LANSOPRAZOLE) [Suspect]
     Indication: PROPHYLAXIS
     Dosage: 15 MG (15 MG,1 IN 1 D) PER ORAL
     Route: 048
     Dates: start: 20110105, end: 20110111
  3. TAKEPRON OD TABLETS 15 (LANSOPRAZOLE) [Suspect]
     Indication: STRESS ULCER
     Dosage: 15 MG (15 MG,1 IN 1 D) PER ORAL
     Route: 048
     Dates: start: 20110105, end: 20110111
  4. TARGOCID [Concomitant]
  5. BIOFERMIN R (STREPTOCOCCUS FAECALIS) [Concomitant]
  6. CEFAMEZIN ALPHA (CEFAZOLIN SODIUM) [Concomitant]
  7. FERROMIA (FERROUS CITRATE) [Concomitant]
  8. POTASSIUM IODIDE [Concomitant]
  9. GENTAMICIN SULFATE [Concomitant]
  10. MUCOSTA (REBAMIPIDE) [Concomitant]

REACTIONS (2)
  - PYREXIA [None]
  - CARDIAC FAILURE [None]
